FAERS Safety Report 9321188 (Version 2)
Quarter: 2013Q2

REPORT INFORMATION
  Report Type: Report from Study
  Country: IT (occurrence: IT)
  Receive Date: 20130531
  Receipt Date: 20130613
  Transmission Date: 20140414
  Serious: Yes (Death, Life-Threatening, Hospitalization)
  Sender: FDA-Public Use
  Company Number: IT-VERTEX PHARMACEUTICALS INC-2013-006585

PATIENT
  Age: 59 Year
  Sex: Male
  Weight: 75 kg

DRUGS (6)
  1. VX-950 (TELAPREVIR) [Suspect]
     Indication: CHRONIC HEPATITIS C
     Dosage: 2 DF, TID
     Route: 048
     Dates: start: 20121023, end: 20130113
  2. RIBAVIRIN [Suspect]
     Indication: CHRONIC HEPATITIS C
     Dosage: DOSAGE FORM: TABLET, 3 DOSES IN THE MORNING AND 3 DOSES IN THE EVENING
     Route: 048
     Dates: start: 20121023, end: 20130514
  3. PEGINTERFERON ALFA-2A [Suspect]
     Indication: CHRONIC HEPATITIS C
     Dosage: DOSAGE FORM: INJECTION
     Route: 058
     Dates: start: 20130511, end: 20130514
  4. PEGINTERFERON ALFA-2A [Suspect]
     Dosage: DOSAGE FORM: INJECTION
     Route: 058
     Dates: start: 20121023, end: 20130510
  5. OMEPRAZOLE [Concomitant]
     Indication: ABDOMINAL PAIN UPPER
     Dosage: 20 MG, QD
     Dates: start: 20121029
  6. AMOXICILLIN [Concomitant]
     Indication: PYREXIA
     Dosage: 1 G, BID
     Dates: start: 20130508, end: 20130510

REACTIONS (1)
  - Hepatocellular carcinoma [Fatal]
